FAERS Safety Report 5132296-5 (Version None)
Quarter: 2006Q4

REPORT INFORMATION
  Report Type: 
  Country: None (occurrence: None)
  Receive Date: 20061023
  Receipt Date: 20061010
  Transmission Date: 20070319
  Serious: Yes (Hospitalization)
  Sender: FDA-Public Use
  Company Number: BE-JNJFOC-20061002861

PATIENT
  Age: 5 Decade
  Sex: Female

DRUGS (6)
  1. TOPAMAX [Suspect]
  2. TOPAMAX [Suspect]
     Indication: DRUG USE FOR UNKNOWN INDICATION
  3. KEPPRA [Suspect]
     Indication: DRUG USE FOR UNKNOWN INDICATION
  4. MAREVAN [Concomitant]
  5. ELTHYRONE [Concomitant]
  6. SIMVASTATIN [Concomitant]

REACTIONS (1)
  - ACUTE FEBRILE NEUTROPHILIC DERMATOSIS [None]
